FAERS Safety Report 4525858-7 (Version None)
Quarter: 2004Q4

REPORT INFORMATION
  Report Type: 
  Country: None (occurrence: None)
  Receive Date: 20041124
  Receipt Date: 20040323
  Transmission Date: 20050328
  Serious: Yes (Hospitalization, Other)
  Sender: FDA-Public Use
  Company Number: 2003125159

PATIENT
  Sex: Female
  Weight: 95.709 kg

DRUGS (22)
  1. TIKOSYN [Suspect]
     Indication: ATRIAL FIBRILLATION
     Dosage: 1000 MCG (BID), ORAL
     Route: 048
  2. ASPIRIN [Concomitant]
  3. ATORVASTATIN (ATORVASTATIN) [Concomitant]
  4. ALPRAZOLAM [Concomitant]
  5. ENALAPRIL MALEATE [Concomitant]
  6. DIGOXIN [Concomitant]
  7. MAGNESIUM OXIDE (MAGNESIUM OXIDE) [Concomitant]
  8. CARVEDILOL [Concomitant]
  9. FUROSEMIDE [Concomitant]
  10. SPIRONOLACTONE [Concomitant]
  11. WARFARIN SODIUM [Concomitant]
  12. DOCUSATE SODIUM (DOCUSATE SODIUM) [Concomitant]
  13. NICOTINIC ACID [Concomitant]
  14. TOCOPHEROL CONCENTRATE CAP [Concomitant]
  15. CALCIUM WITH VITAMIN D (ERGOCALCIFEROL, CALCIUM PHOSPHATE, CALCIUM SOD [Concomitant]
  16. FISH OIL (FISH OIL) [Concomitant]
  17. PROPRANOLOL [Concomitant]
  18. GLIPIZIDE/METFORMIN HYDROCHLORIDE (METFORMIN HYDROCHLORIDE, GLIPIZIDE) [Concomitant]
  19. PYRIDOXINE HCL [Concomitant]
  20. CYANOCOBALAMIN (CYANOCOBALAMIN) [Concomitant]
  21. FOLIC ACID [Concomitant]
  22. ACETAMINOPHEN [Concomitant]

REACTIONS (4)
  - ATRIAL FIBRILLATION [None]
  - DRUG INEFFECTIVE [None]
  - FEAR [None]
  - HOSPITALISATION [None]
